FAERS Safety Report 6928227-5 (Version None)
Quarter: 2010Q3

REPORT INFORMATION
  Report Type: 
  Country: None (occurrence: None)
  Receive Date: 20100817
  Receipt Date: 20100809
  Transmission Date: 20110219
  Serious: Yes (Other)
  Sender: FDA-Public Use
  Company Number: JP-MPIJNJ-2010-04291

PATIENT

DRUGS (2)
  1. VELCADE [Suspect]
     Indication: MULTIPLE MYELOMA
     Dosage: UNK
     Route: 042
     Dates: start: 20100803
  2. DUROTEP [Suspect]
     Indication: CANCER PAIN
     Dosage: UNK, UNK
     Route: 062
     Dates: start: 20100731, end: 20100802

REACTIONS (7)
  - ASTHENIA [None]
  - DRUG WITHDRAWAL SYNDROME [None]
  - INSOMNIA [None]
  - IRRITABILITY [None]
  - NEUROPATHY PERIPHERAL [None]
  - PRURITUS GENERALISED [None]
  - RESTLESSNESS [None]
